FAERS Safety Report 22658489 (Version 1)
Quarter: 2023Q2

REPORT INFORMATION
  Report Type: Report from Study
  Country: BR (occurrence: BR)
  Receive Date: 20230630
  Receipt Date: 20230630
  Transmission Date: 20230721
  Serious: Yes (Other)
  Sender: FDA-Public Use
  Company Number: BR-MYLANLABS-2023M1068272

PATIENT
  Age: 23 Year
  Sex: Male

DRUGS (4)
  1. RANITIDINE [Suspect]
     Active Substance: RANITIDINE
     Indication: Anaphylaxis prophylaxis
     Dosage: UNK
     Route: 065
  2. HYDROCORTISONE [Suspect]
     Active Substance: HYDROCORTISONE
     Indication: Anaphylaxis prophylaxis
     Dosage: UNK
     Route: 042
  3. LORATADINE [Suspect]
     Active Substance: LORATADINE
     Indication: Anaphylaxis prophylaxis
     Dosage: UNK
     Route: 065
  4. TALIGLUCERASE ALFA [Concomitant]
     Active Substance: TALIGLUCERASE ALFA
     Indication: Gaucher^s disease type III
     Dosage: UNK
     Route: 042

REACTIONS (1)
  - Drug ineffective [Unknown]
